FAERS Safety Report 9563506 (Version 1)
Quarter: 2013Q3

REPORT INFORMATION
  Report Type: Spontaneous
  Country: US (occurrence: None)
  Receive Date: 20130926
  Receipt Date: 20130926
  Transmission Date: 20140515
  Serious: Yes (Life-Threatening, Hospitalization)
  Sender: FDA-Public Use
  Company Number: None

PATIENT
  Age: 77 Year
  Sex: Male
  Weight: 76.8 kg

DRUGS (6)
  1. WARFARIN [Suspect]
     Indication: ACUTE MYOCARDIAL INFARCTION
     Route: 048
     Dates: start: 20110609, end: 20110611
  2. WARFARIN [Suspect]
     Indication: VENTRICULAR FIBRILLATION
     Route: 048
     Dates: start: 20110609, end: 20110611
  3. AMIODARONE [Concomitant]
  4. ISOSORBIDE [Concomitant]
  5. FINASTERIDE [Concomitant]
  6. GABAPENTIN [Concomitant]

REACTIONS (2)
  - Fall [None]
  - Subdural haematoma [None]
